FAERS Safety Report 5057522-2 (Version None)
Quarter: 2006Q3

REPORT INFORMATION
  Report Type: 
  Country: None (occurrence: None)
  Receive Date: 20060721
  Receipt Date: 20051103
  Transmission Date: 20061208
  Serious: No
  Sender: FDA-Public Use
  Company Number: US-GLAXOSMITHKLINE-A0580789A

PATIENT
  Sex: Female

DRUGS (12)
  1. AVANDIA [Suspect]
     Dosage: 8MG PER DAY
     Route: 048
  2. INSULIN [Concomitant]
  3. HYDROCHLOROTHIAZIDE [Concomitant]
  4. PLAVIX [Concomitant]
  5. PEPCID [Concomitant]
  6. TOPROL-XL [Concomitant]
  7. ELAVIL [Concomitant]
  8. COZAAR [Concomitant]
  9. HYDRALAZINE HCL [Concomitant]
  10. CATAPRES [Concomitant]
  11. ZOCOR [Concomitant]
  12. PREMARIN [Concomitant]

REACTIONS (1)
  - URTICARIA [None]
